FAERS Safety Report 10279887 (Version 2)
Quarter: 2014Q3

REPORT INFORMATION
  Report Type: Spontaneous
  Country: GB (occurrence: None)
  Receive Date: 20140702
  Receipt Date: 20140717
  Transmission Date: 20150326
  Serious: Yes (Hospitalization, Disabling, Other)
  Sender: FDA-Public Use
  Company Number: AUR-APL-2014-06781

PATIENT
  Age: 74 Year
  Sex: Male
  Weight: 101.6 kg

DRUGS (2)
  1. SIMVASTATIN (SIMVASTATIN) [Concomitant]
     Active Substance: SIMVASTATIN
  2. GABAPENTIN. [Suspect]
     Active Substance: GABAPENTIN
     Indication: HEADACHE
     Route: 048
     Dates: start: 20140405

REACTIONS (6)
  - Dementia [None]
  - Hypersomnia [None]
  - Musculoskeletal stiffness [None]
  - Pain [None]
  - Dysarthria [None]
  - Confusional state [None]

NARRATIVE: CASE EVENT DATE: 20140405
